FAERS Safety Report 20968425 (Version 3)
Quarter: 2022Q3

REPORT INFORMATION
  Report Type: Report from Study
  Country: US (occurrence: US)
  Receive Date: 20220616
  Receipt Date: 20220909
  Transmission Date: 20221026
  Serious: No
  Sender: FDA-Public Use
  Company Number: US-NOVARTISTESTPH-NVSC2022US138026

PATIENT
  Sex: Female

DRUGS (1)
  1. COSENTYX [Suspect]
     Active Substance: SECUKINUMAB
     Indication: Psoriatic arthropathy
     Dosage: UNK UNK, QMO (LAST DOSE BEING ADMINISTERED)
     Route: 058
     Dates: start: 202204

REACTIONS (3)
  - Upper respiratory tract infection [Unknown]
  - Malaise [Unknown]
  - Throat irritation [Unknown]
